FAERS Safety Report 5188600-5 (Version None)
Quarter: 2006Q4

REPORT INFORMATION
  Report Type: 
  Country: None (occurrence: None)
  Receive Date: 20061221
  Receipt Date: 20060106
  Transmission Date: 20070319
  Serious: Yes (Hospitalization, Other)
  Sender: FDA-Public Use
  Company Number: US-ELI_LILLY_AND_COMPANY-US200601001512

PATIENT
  Age: 81 Year
  Sex: Female
  Weight: 80.272 kg

DRUGS (15)
  1. HUMALOG MIX 75/25 [Suspect]
     Indication: DIABETES MELLITUS NON-INSULIN-DEPENDENT
     Dosage: 30 U, EACH MORNING
  2. HUMALOG MIX 75/25 [Suspect]
     Dosage: 14 U, EACH MORNING
     Dates: start: 19960101
  3. HUMALOG MIX 75/25 [Suspect]
     Dosage: 30 U, EACH EVENING
  4. HUMALOG MIX 75/25 [Suspect]
     Dosage: 14 U, DAILY (1/D)
  5. HUMALOG [Suspect]
     Indication: DIABETES MELLITUS NON-INSULIN-DEPENDENT
     Dosage: 14 U, DAILY (1/D)
  6. HUMALOG [Suspect]
     Dosage: 4 U, EACH EVENING
     Dates: start: 19960101
  7. HUMULIN N [Suspect]
     Indication: DIABETES MELLITUS NON-INSULIN-DEPENDENT
     Dosage: 20 U, EACH EVENING
  8. HUMULIN N [Suspect]
     Dosage: 8 U, EACH EVENING
     Dates: start: 19960101
  9. URSODIOL [Concomitant]
     Dosage: 300 MG, 4/D
  10. PRECOSE [Concomitant]
     Dosage: 100 MG, 3/D
  11. FOLIC ACID [Concomitant]
     Dosage: 1 MG, UNK
  12. AVALIDE [Concomitant]
     Indication: HYPERTENSION
     Dosage: 1 UNK, DAILY (1/D)
  13. NEXIUM [Concomitant]
  14. ASA TABS [Concomitant]
     Dosage: 81 MG, UNK
  15. FOSAMAX                                 /ITA/ [Concomitant]
     Indication: OSTEOPOROSIS
     Dosage: 70 MG, WEEKLY (1/W)

REACTIONS (24)
  - ABDOMINAL PAIN UPPER [None]
  - ALOPECIA [None]
  - ANXIETY [None]
  - ATELECTASIS [None]
  - CARDIAC MURMUR [None]
  - CHEST PAIN [None]
  - CLAVICLE FRACTURE [None]
  - DECREASED APPETITE [None]
  - DEHYDRATION [None]
  - DEPRESSION [None]
  - DIFFUSE LARGE B-CELL LYMPHOMA [None]
  - FATIGUE [None]
  - FLUID RETENTION [None]
  - GAIT DISTURBANCE [None]
  - HEART VALVE CALCIFICATION [None]
  - HYPOGLYCAEMIA [None]
  - LACRIMATION INCREASED [None]
  - LUNG INJURY [None]
  - NEUTROPENIA [None]
  - PAIN [None]
  - PANCYTOPENIA [None]
  - PYREXIA [None]
  - RHINORRHOEA [None]
  - UPPER LIMB FRACTURE [None]
